FAERS Safety Report 22375095 (Version 2)
Quarter: 2023Q2

REPORT INFORMATION
  Report Type: Spontaneous
  Country: CN (occurrence: CN)
  Receive Date: 20230527
  Receipt Date: 20230531
  Transmission Date: 20230722
  Serious: Yes (Other)
  Sender: FDA-Public Use
  Company Number: CN-002147023-NVSC2023CN117801

PATIENT
  Age: 66 Year
  Sex: Female
  Weight: 55.2 kg

DRUGS (1)
  1. SACUBITRIL\VALSARTAN [Suspect]
     Active Substance: SACUBITRIL\VALSARTAN
     Indication: Cardiac failure
     Dosage: 0.1 G, QD
     Route: 048
     Dates: start: 20230411, end: 20230502

REACTIONS (4)
  - Hyperkalaemia [Recovering/Resolving]
  - Limb discomfort [Unknown]
  - Muscular weakness [Unknown]
  - Inappropriate schedule of product administration [Unknown]

NARRATIVE: CASE EVENT DATE: 20230411
